FAERS Safety Report 8296906-6 (Version None)
Quarter: 2012Q2

REPORT INFORMATION
  Report Type: 
  Country: None (occurrence: None)
  Receive Date: 20120419
  Receipt Date: 20120409
  Transmission Date: 20120825
  Serious: No
  Sender: FDA-Public Use
  Company Number: US-BIOGENIDEC-2011BI021065

PATIENT
  Age: 48 Year
  Sex: Female

DRUGS (2)
  1. TYSABRI [Suspect]
     Indication: MULTIPLE SCLEROSIS
     Route: 042
     Dates: start: 20050121, end: 20050209
  2. TYSABRI [Suspect]
     Route: 042
     Dates: start: 20110418

REACTIONS (4)
  - EYE PRURITUS [None]
  - FLUSHING [None]
  - HYPERSENSITIVITY [None]
  - PRURITUS [None]
